FAERS Safety Report 5490332-0 (Version None)
Quarter: 2007Q4

REPORT INFORMATION
  Report Type: 
  Country: None (occurrence: None)
  Receive Date: 20071017
  Receipt Date: 20071004
  Transmission Date: 20080405
  Serious: Yes (Hospitalization)
  Sender: FDA-Public Use
  Company Number: SPV1-2007-04412

PATIENT
  Age: 4 Year
  Sex: Male
  Weight: 19.5 kg

DRUGS (7)
  1. DAYTRANA [Suspect]
     Indication: ATTENTION DEFICIT/HYPERACTIVITY DISORDER
     Dosage: 15 MG, 1X/DAY:QD, TRANSDERMAL
     Route: 062
     Dates: start: 20070901
  2. SINGULAIR /01362601/ (MONTELUKAST) [Concomitant]
  3. NASONEX [Concomitant]
  4. ALBUTEROL /00139501/ (SALBUTAMOL) [Concomitant]
  5. FLOVENT [Concomitant]
  6. STRATTERA [Concomitant]
  7. TENEX [Concomitant]

REACTIONS (3)
  - OFF LABEL USE [None]
  - PHARMACEUTICAL PRODUCT COMPLAINT [None]
  - PNEUMONIA [None]
